FAERS Safety Report 24047436 (Version 1)
Quarter: 2024Q3

REPORT INFORMATION
  Report Type: Spontaneous
  Country: US (occurrence: US)
  Receive Date: 20240703
  Receipt Date: 20240703
  Transmission Date: 20241017
  Serious: No
  Sender: LUNDBECK
  Company Number: US-LUNDBECK-DKLU3078134

PATIENT

DRUGS (6)
  1. VYEPTI [Suspect]
     Active Substance: EPTINEZUMAB-JJMR
     Dosage: 100 003
     Route: 041
     Dates: start: 20230727
  2. VYEPTI [Suspect]
     Active Substance: EPTINEZUMAB-JJMR
     Indication: Migraine
  3. BUPROPION HYDROCHLORIDE [Concomitant]
     Active Substance: BUPROPION HYDROCHLORIDE
     Indication: Product used for unknown indication
     Route: 048
  4. JUNEL FE 1/20 [Concomitant]
     Active Substance: ETHINYL ESTRADIOL\NORETHINDRONE ACETATE
     Indication: Product used for unknown indication
     Route: 048
  5. QULIPTA [Concomitant]
     Active Substance: ATOGEPANT
     Indication: Product used for unknown indication
     Route: 048
  6. TRAZODONE HCL [Concomitant]
     Active Substance: TRAZODONE HYDROCHLORIDE
     Indication: Product used for unknown indication
     Route: 048

REACTIONS (2)
  - Migraine [Recovering/Resolving]
  - Inappropriate schedule of product administration [Recovering/Resolving]
